FAERS Safety Report 6161159-1 (Version None)
Quarter: 2009Q2

REPORT INFORMATION
  Report Type: 
  Country: None (occurrence: None)
  Receive Date: 20090417
  Receipt Date: 20090417
  Transmission Date: 20091009
  Serious: No
  Sender: FDA-Public Use
  Company Number: None

PATIENT
  Sex: Female
  Weight: 70.3075 kg

DRUGS (1)
  1. CHANTIX [Suspect]
     Indication: SMOKING CESSATION THERAPY
     Dosage: INCREASING 1;  INCREASING 2 HIGHER DOSE
     Dates: start: 20090221, end: 20090309

REACTIONS (2)
  - BLISTER [None]
  - HYPERSENSITIVITY [None]
